FAERS Safety Report 24700319 (Version 1)
Quarter: 2024Q4

REPORT INFORMATION
  Report Type: Spontaneous
  Country: US (occurrence: US)
  Receive Date: 20241205
  Receipt Date: 20241205
  Transmission Date: 20250115
  Serious: Yes (Life-Threatening, Other)
  Sender: ALKEM
  Company Number: US-ALKEM LABORATORIES LIMITED-US-ALKEM-2024-01049

PATIENT
  Age: 51 Year
  Sex: Male

DRUGS (1)
  1. METFORMIN HYDROCHLORIDE [Suspect]
     Active Substance: METFORMIN HYDROCHLORIDE
     Indication: Pain
     Dosage: UNK, QID (EVERY 6 HOURS TO STOP PAIN)
     Route: 065

REACTIONS (3)
  - Drug level increased [Unknown]
  - Lactic acidosis [Recovering/Resolving]
  - Medication error [Unknown]
